FAERS Safety Report 9299964 (Version 2)
Quarter: 2013Q1

REPORT INFORMATION
  Report Type: Spontaneous
  Country: MX (occurrence: None)
  Receive Date: 20121101
  Receipt Date: 20130214
  Transmission Date: 20140127
  Serious: Yes (Life-Threatening)
  Sender: FDA-Public Use
  Company Number: 12-2699

PATIENT
  Age: 14 Year
  Sex: Male

DRUGS (1)
  1. XEOMIN [Suspect]
     Indication: MUSCLE SPASTICITY
     Dosage: (50 , 1 IN 1 TOTAL) INTRAMUSCULAR
     Route: 030
     Dates: start: 20120928, end: 20120928

REACTIONS (7)
  - Cardiogenic shock [None]
  - Apnoea [None]
  - Pallor [None]
  - Hypoglycaemia [None]
  - Cardio-respiratory arrest [None]
  - Cardiopulmonary failure [None]
  - Hypersensitivity [None]
